FAERS Safety Report 21855758 (Version 3)
Quarter: 2023Q1

REPORT INFORMATION
  Report Type: Spontaneous
  Country: US (occurrence: US)
  Receive Date: 20230112
  Receipt Date: 20230309
  Transmission Date: 20230418
  Serious: No
  Sender: FDA-Public Use
  Company Number: US-PFIZER INC-202300013136

PATIENT
  Age: 85 Year
  Sex: Female
  Weight: 53.07 kg

DRUGS (3)
  1. TOVIAZ [Suspect]
     Active Substance: FESOTERODINE FUMARATE
     Indication: Incontinence
     Dosage: 4 MG
  2. TOVIAZ [Suspect]
     Active Substance: FESOTERODINE FUMARATE
     Dosage: 4 MG, 2X/DAY (TAKING 2 OF THE 4MG TO MAKE 8 MG A DAY)
  3. TOVIAZ [Suspect]
     Active Substance: FESOTERODINE FUMARATE
     Dosage: 1 DF, 1X/DAY
     Route: 048

REACTIONS (4)
  - Bladder prolapse [Not Recovered/Not Resolved]
  - Feeling of despair [Unknown]
  - Weight decreased [Unknown]
  - Expired product administered [Unknown]

NARRATIVE: CASE EVENT DATE: 20120101
